FAERS Safety Report 15647084 (Version 2)
Quarter: 2018Q4

REPORT INFORMATION
  Report Type: Spontaneous
  Country: US (occurrence: US)
  Receive Date: 20181122
  Receipt Date: 20181217
  Transmission Date: 20190205
  Serious: Yes (Hospitalization, Other)
  Sender: FDA-Public Use
  Company Number: US-ELI_LILLY_AND_COMPANY-US201811008340

PATIENT
  Sex: Female

DRUGS (2)
  1. VERZENIO [Suspect]
     Active Substance: ABEMACICLIB
     Indication: BREAST CANCER FEMALE
     Dosage: UNK UNK, UNKNOWN
     Route: 048
     Dates: start: 201804
  2. VERZENIO [Suspect]
     Active Substance: ABEMACICLIB
     Dosage: 100 MG, BID
     Route: 048

REACTIONS (16)
  - Alopecia [Unknown]
  - Dry mouth [Unknown]
  - Vomiting [Unknown]
  - Dysgeusia [Unknown]
  - Myalgia [Unknown]
  - Abdominal pain [Unknown]
  - Cough [Unknown]
  - Nausea [Unknown]
  - Headache [Unknown]
  - Diarrhoea [Unknown]
  - Anaemia [Unknown]
  - Decreased appetite [Unknown]
  - Malignant neoplasm progression [Unknown]
  - Fatigue [Unknown]
  - Oral pain [Unknown]
  - Weight decreased [Unknown]
